FAERS Safety Report 7688706-2 (Version None)
Quarter: 2011Q3

REPORT INFORMATION
  Report Type: 
  Country: None (occurrence: None)
  Receive Date: 20110817
  Receipt Date: 20110407
  Transmission Date: 20111222
  Serious: Yes (Other)
  Sender: FDA-Public Use
  Company Number: JP-GLAXOSMITHKLINE-B0712252A

PATIENT
  Sex: Male
  Weight: 43 kg

DRUGS (11)
  1. PRIMPERAN TAB [Concomitant]
     Dosage: 30MG PER DAY
     Dates: end: 20100803
  2. CIPROFLOXACIN HCL [Concomitant]
     Dosage: 600MG PER DAY
     Route: 048
     Dates: end: 20100610
  3. SULFAMETHOXAZOLE [Concomitant]
     Dosage: 2IUAX PER DAY
     Route: 048
     Dates: end: 20100602
  4. KYTRIL [Concomitant]
     Dosage: 6MG PER DAY
     Route: 042
     Dates: start: 20100601, end: 20100602
  5. MICARDIS [Concomitant]
     Dosage: 40MG PER DAY
     Route: 048
     Dates: end: 20100831
  6. FUROSEMIDE [Concomitant]
     Dosage: 40MG PER DAY
     Route: 042
     Dates: start: 20100601, end: 20100618
  7. FUNGUARD [Concomitant]
     Dosage: 150MG PER DAY
     Route: 042
     Dates: end: 20100730
  8. NEO-MINOPHAGEN-C [Concomitant]
     Dosage: 40ML PER DAY
     Route: 042
     Dates: end: 20100618
  9. FULCALIQ [Concomitant]
     Dosage: 903ML PER DAY
     Route: 042
     Dates: end: 20100606
  10. HUMULIN R [Concomitant]
     Dosage: 16IU PER DAY
     Dates: end: 20100618
  11. ALKERAN [Suspect]
     Indication: STEM CELL TRANSPLANT
     Dosage: 100MGM2 PER DAY
     Route: 042
     Dates: start: 20100601, end: 20100602

REACTIONS (1)
  - BLOOD BILIRUBIN INCREASED [None]
